FAERS Safety Report 14130840 (Version 2)
Quarter: 2018Q1

REPORT INFORMATION
  Report Type: Report from Study
  Country: US (occurrence: US)
  Receive Date: 20171026
  Receipt Date: 20180124
  Transmission Date: 20180508
  Serious: No
  Sender: FDA-Public Use
  Company Number: US-AMGEN-USASP2017121981

PATIENT
  Age: 78 Year
  Sex: Male

DRUGS (2)
  1. REPATHA [Suspect]
     Active Substance: EVOLOCUMAB
     Indication: TYPE V HYPERLIPIDAEMIA
     Dosage: 140 MG, Q2WK
     Route: 065
     Dates: start: 201706, end: 2017
  2. REPATHA [Suspect]
     Active Substance: EVOLOCUMAB
     Indication: MYOCARDIAL ISCHAEMIA

REACTIONS (11)
  - Nasopharyngitis [Unknown]
  - Tendonitis [Unknown]
  - Mobility decreased [Unknown]
  - Asthenia [Not Recovered/Not Resolved]
  - Fatigue [Not Recovered/Not Resolved]
  - Exercise tolerance decreased [Unknown]
  - Muscular weakness [Unknown]
  - Myalgia [Unknown]
  - Arthralgia [Not Recovered/Not Resolved]
  - Pain in extremity [Unknown]
  - Back pain [Unknown]

NARRATIVE: CASE EVENT DATE: 2017
